FAERS Safety Report 8789886 (Version 3)
Quarter: 2012Q4

REPORT INFORMATION
  Report Type: 
  Country: JP (occurrence: JP)
  Receive Date: 20120917
  Receipt Date: 20121025
  Transmission Date: 20130627
  Serious: Yes (Other)
  Sender: FDA-Public Use
  Company Number: JP-PFIZER INC-2012224337

PATIENT

DRUGS (1)
  1. IDAMYCIN [Suspect]
     Dosage: 22 mg, 1x/day
     Route: 042

REACTIONS (1)
  - Pericardial effusion [Recovered/Resolved]
